FAERS Safety Report 9510952 (Version 1)
Quarter: 2013Q3

REPORT INFORMATION
  Report Type: Spontaneous
  Country: US (occurrence: US)
  Receive Date: 20130910
  Receipt Date: 20130910
  Transmission Date: 20140515
  Serious: No
  Sender: FDA-Public Use
  Company Number: US-009507513-1309USA002533

PATIENT
  Sex: 0
  Weight: 55.33 kg

DRUGS (1)
  1. NEXPLANON [Suspect]
     Dosage: 68 MG, ONE ROD EVERY THREE YEARS
     Route: 059
     Dates: start: 20130903

REACTIONS (3)
  - Device difficult to use [Recovered/Resolved]
  - Device deployment issue [Recovered/Resolved]
  - Skin lesion [Unknown]
